FAERS Safety Report 20052668 (Version 1)
Quarter: 2021Q4

REPORT INFORMATION
  Report Type: Spontaneous
  Country: CA (occurrence: CA)
  Receive Date: 20211110
  Receipt Date: 20211110
  Transmission Date: 20220303
  Serious: Yes (Hospitalization)
  Sender: FDA-Public Use
  Company Number: CA-TEVA-2021-CA-1974559

PATIENT
  Age: 33 Year
  Sex: Female
  Weight: 65 kg

DRUGS (2)
  1. METHOTREXATE [Suspect]
     Active Substance: METHOTREXATE
     Indication: Ectopic pregnancy termination
     Route: 030
  2. METHOTREXATE [Suspect]
     Active Substance: METHOTREXATE
     Route: 030

REACTIONS (2)
  - Abdominal pain lower [Recovered/Resolved]
  - Necrosis [Recovered/Resolved]
